FAERS Safety Report 6463901-9 (Version None)
Quarter: 2009Q4

REPORT INFORMATION
  Report Type: 
  Country: None (occurrence: None)
  Receive Date: 20091201
  Receipt Date: 20091120
  Transmission Date: 20100525
  Serious: Yes (Hospitalization, Other)
  Sender: FDA-Public Use
  Company Number: ES-WYE-G04726109

PATIENT
  Age: 52 Year
  Sex: Male
  Weight: 61 kg

DRUGS (7)
  1. GEMTUZUMAB OZOGAMICIN [Suspect]
     Indication: ACUTE MYELOID LEUKAEMIA
     Route: 042
     Dates: start: 20091017, end: 20091017
  2. CYTARABINE [Concomitant]
     Dates: start: 20091017, end: 20091023
  3. HIBOR [Concomitant]
     Indication: PROPHYLAXIS
     Route: 058
     Dates: start: 20091017, end: 20091024
  4. AMIKACIN [Concomitant]
     Indication: PYREXIA
     Route: 042
     Dates: start: 20091017, end: 20091106
  5. POSACONAZOLE [Concomitant]
     Indication: PROPHYLAXIS
     Route: 048
     Dates: start: 20091017, end: 20091024
  6. IDARUBICIN HCL [Suspect]
     Indication: ACUTE MYELOID LEUKAEMIA
     Route: 042
     Dates: start: 20091018, end: 20091020
  7. CEFTAZIDIME [Concomitant]
     Indication: PYREXIA
     Route: 042
     Dates: start: 20091017, end: 20091024

REACTIONS (2)
  - ACUTE PULMONARY OEDEMA [None]
  - SEPTIC SHOCK [None]
